FAERS Safety Report 5420668-0 (Version None)
Quarter: 2007Q3

REPORT INFORMATION
  Report Type: 
  Country: None (occurrence: None)
  Receive Date: 20070816
  Receipt Date: 20070726
  Transmission Date: 20080115
  Serious: Yes (Other)
  Sender: FDA-Public Use
  Company Number: 6035453

PATIENT
  Sex: Female

DRUGS (5)
  1. GLUCOPHAGE XR [Suspect]
     Indication: DRUG USE FOR UNKNOWN INDICATION
     Dosage: 1000 MG (1000 MG, 1 IN 1 D)
     Route: 048
  2. GAVISCON (SODIUM BICARBONATE, ALUMINIUM HYDROXIDE GEL, DRIED, ALGINIC [Concomitant]
  3. METOPROLOL TARTRATE [Concomitant]
  4. CO-PROXAMOL (PARACETAMOL, DEXTROPROPOXYPHENE) [Concomitant]
  5. GLYCERYL TRINITRATE (GLYCERYL TRINIATRATE) [Concomitant]

REACTIONS (4)
  - DIABETES MELLITUS INADEQUATE CONTROL [None]
  - DIARRHOEA [None]
  - INADEQUATE DIET [None]
  - WEIGHT INCREASED [None]
